FAERS Safety Report 21684413 (Version 1)
Quarter: 2022Q4

REPORT INFORMATION
  Report Type: Report from Study
  Country: CN (occurrence: CN)
  Receive Date: 20221205
  Receipt Date: 20221205
  Transmission Date: 20230112
  Serious: Yes (Death, Other)
  Sender: FDA-Public Use
  Company Number: CN-BRISTOL-MYERS SQUIBB COMPANY-2022-147237

PATIENT
  Age: 72 Year
  Sex: Male
  Weight: 59 kg

DRUGS (3)
  1. IPILIMUMAB [Suspect]
     Active Substance: IPILIMUMAB
     Indication: Hepatocellular carcinoma
     Dosage: ON 11-NOV-2022 (CYCLE 4), THE PATIENT RECEIVED HIS LAST DOSE OF THE STUDY THERAPY.
     Route: 042
     Dates: start: 20220908
  2. ENTECAVIR [Concomitant]
     Active Substance: ENTECAVIR
     Indication: Product used for unknown indication
     Route: 048
     Dates: start: 202208
  3. NAPROXEN SUSTAINED RELEASE CAPSULES [Concomitant]
     Indication: Product used for unknown indication
     Route: 048
     Dates: start: 202208

REACTIONS (1)
  - Death [Fatal]

NARRATIVE: CASE EVENT DATE: 20221128
